FAERS Safety Report 4898632-X (Version None)
Quarter: 2006Q1

REPORT INFORMATION
  Report Type: 
  Country: None (occurrence: None)
  Receive Date: 20060127
  Receipt Date: 20060113
  Transmission Date: 20060701
  Serious: Yes (Hospitalization, Disabling)
  Sender: FDA-Public Use
  Company Number: US200601002138

PATIENT
  Age: 42 Year
  Sex: Female

DRUGS (4)
  1. PROZAC [Suspect]
     Indication: DRUG WITHDRAWAL SYNDROME
     Dosage: 10 MG, UNK
     Dates: start: 20020101
  2. PAXIL [Concomitant]
  3. CLONAZEPAM [Concomitant]
  4. ZYPREXA [Suspect]
     Dosage: UNK

REACTIONS (13)
  - AFFECTIVE DISORDER [None]
  - AGITATION [None]
  - DEPRESSION [None]
  - FEELING ABNORMAL [None]
  - HOMICIDAL IDEATION [None]
  - IMPAIRED WORK ABILITY [None]
  - IRRITABILITY [None]
  - LIBIDO INCREASED [None]
  - MANIA [None]
  - PERFORMANCE STATUS DECREASED [None]
  - SOMNOLENCE [None]
  - SUICIDAL IDEATION [None]
  - TREATMENT NONCOMPLIANCE [None]
